FAERS Safety Report 9123595 (Version 1)
Quarter: 2013Q1

REPORT INFORMATION
  Report Type: Spontaneous
  Country: IN (occurrence: None)
  Receive Date: 20130131
  Receipt Date: 20130131
  Transmission Date: 20140127
  Serious: Yes (Hospitalization)
  Sender: FDA-Public Use
  Company Number: FK201300205

PATIENT
  Age: 24 Year
  Sex: Male

DRUGS (9)
  1. ONDANSETRON [Suspect]
     Indication: GASTROENTERITIS
  2. OFOXACIN [Concomitant]
  3. ORNIDAZOLE (ORNIDAZOLE) [Concomitant]
  4. VITAMINS [Concomitant]
  5. RIFAMPICIN (RIFAMPICIN) [Concomitant]
  6. ISONIAZID (ISONIAZID) [Concomitant]
  7. ETHAMBUTOL (ETHAMBUTOL) [Concomitant]
  8. PYRAZINAMIDE (PYRAZINAMIDE) [Concomitant]
  9. CORTIMOXAZOLE (BACTRIM /00086101/) [Concomitant]

REACTIONS (4)
  - Toxic epidermal necrolysis [None]
  - Nausea [None]
  - Heart rate increased [None]
  - White blood cell count decreased [None]
